FAERS Safety Report 15588895 (Version 2)
Quarter: 2019Q1

REPORT INFORMATION
  Report Type: Spontaneous
  Country: US (occurrence: US)
  Receive Date: 20181106
  Receipt Date: 20190115
  Transmission Date: 20190417
  Serious: Yes (Other)
  Sender: FDA-Public Use
  Company Number: US-ROCHE-2205650

PATIENT
  Age: 73 Year
  Sex: Female
  Weight: 83.99 kg

DRUGS (1)
  1. LUCENTIS [Suspect]
     Active Substance: RANIBIZUMAB
     Indication: NEOVASCULAR AGE-RELATED MACULAR DEGENERATION
     Route: 065
     Dates: start: 20181019

REACTIONS (12)
  - Tooth fracture [Not Recovered/Not Resolved]
  - Headache [Recovered/Resolved]
  - Pain of skin [Not Recovered/Not Resolved]
  - Blister infected [Not Recovered/Not Resolved]
  - Skin burning sensation [Recovered/Resolved]
  - Rash [Recovered/Resolved]
  - Eye pain [Recovered/Resolved]
  - Blister [Recovering/Resolving]
  - Intraocular pressure test abnormal [Unknown]
  - Herpes zoster [Recovering/Resolving]
  - Burning sensation [Recovered/Resolved]
  - Eye pain [Unknown]

NARRATIVE: CASE EVENT DATE: 20181019
